FAERS Safety Report 14193297 (Version 5)
Quarter: 2017Q4

REPORT INFORMATION
  Report Type: Spontaneous
  Country: GB (occurrence: GB)
  Receive Date: 20171116
  Receipt Date: 20171120
  Transmission Date: 20180321
  Serious: Yes (Hospitalization)
  Sender: FDA-Public Use
  Company Number: GB-CONCORDIA PHARMACEUTICALS INC.-GSH201511-015670

PATIENT
  Age: 73 Year
  Sex: Female

DRUGS (18)
  1. PREDNISOLONE. [Suspect]
     Active Substance: PREDNISOLONE
     Indication: PNEUMONIA
     Dosage: IN THE MORNING
     Route: 048
     Dates: start: 20151028, end: 20151109
  2. IPRATROPIUM [Concomitant]
     Active Substance: IPRATROPIUM
  3. ENOXAPARIN [Concomitant]
     Active Substance: ENOXAPARIN
  4. SYMBICORT [Concomitant]
     Active Substance: BUDESONIDE\FORMOTEROL FUMARATE DIHYDRATE
  5. CALCICHEW D3 [Concomitant]
     Active Substance: CALCIUM\CHOLECALCIFEROL
  6. METRONIDAZOLE. [Concomitant]
     Active Substance: METRONIDAZOLE
  7. LEVOFLOXACIN. [Concomitant]
     Active Substance: LEVOFLOXACIN
  8. NYSTATIN. [Concomitant]
     Active Substance: NYSTATIN
  9. DILTIAZEM. [Concomitant]
     Active Substance: DILTIAZEM
  10. ZOPICLONE [Concomitant]
     Active Substance: ZOPICLONE
  11. ASPIRIN. [Concomitant]
     Active Substance: ASPIRIN
  12. FUROSEMIDE. [Concomitant]
     Active Substance: FUROSEMIDE
  13. RAMIPRIL. [Concomitant]
     Active Substance: RAMIPRIL
  14. ANASTROZOLE. [Concomitant]
     Active Substance: ANASTROZOLE
  15. OMEPRAZOLE. [Concomitant]
     Active Substance: OMEPRAZOLE
  16. SALBUTAMOL [Concomitant]
     Active Substance: ALBUTEROL
  17. SIMVASTATIN. [Concomitant]
     Active Substance: SIMVASTATIN
  18. SITAGLIPTIN [Concomitant]
     Active Substance: SITAGLIPTIN

REACTIONS (2)
  - Hyperglycaemia [Recovering/Resolving]
  - Empyema [Unknown]

NARRATIVE: CASE EVENT DATE: 20151102
